FAERS Safety Report 8089441 (Version 3)
Quarter: 2014Q1

REPORT INFORMATION
  Report Type: Spontaneous
  Country: FR (occurrence: FR)
  Receive Date: 20110815
  Receipt Date: 20140127
  Transmission Date: 20141002
  Serious: Yes (Hospitalization)
  Sender: FDA-Public Use
  Company Number: FR-US-EMD SERONO, INC.-7075503

PATIENT
  Age: 48 Year
  Sex: Male
  Weight: 59 kg

DRUGS (13)
  1. REBIF [Suspect]
     Indication: MULTIPLE SCLEROSIS
     Route: 058
     Dates: start: 2002
  2. REBIF [Suspect]
     Dosage: 3X44MCG
     Route: 058
     Dates: start: 20110803, end: 20110803
  3. DAFALGAN [Concomitant]
     Indication: PRODUCT USED FOR UNKNOWN INDICATION
  4. LIORESAL [Concomitant]
     Indication: PRODUCT USED FOR UNKNOWN INDICATION
  5. VALIUM [Concomitant]
     Indication: PRODUCT USED FOR UNKNOWN INDICATION
  6. MANTADIX [Concomitant]
     Indication: PRODUCT USED FOR UNKNOWN INDICATION
  7. XATRAL [Concomitant]
     Indication: PRODUCT USED FOR UNKNOWN INDICATION
  8. NEURONTIN [Concomitant]
     Indication: PRODUCT USED FOR UNKNOWN INDICATION
  9. RIVOTRIL [Concomitant]
     Indication: PRODUCT USED FOR UNKNOWN INDICATION
  10. SMECTA [Concomitant]
     Indication: PRODUCT USED FOR UNKNOWN INDICATION
  11. RHINOFLUIMUCIL [Concomitant]
     Indication: PRODUCT USED FOR UNKNOWN INDICATION
  12. MOVICOL [Concomitant]
     Indication: PRODUCT USED FOR UNKNOWN INDICATION
  13. DIFFU K [Concomitant]
     Indication: PRODUCT USED FOR UNKNOWN INDICATION

REACTIONS (4)
  - Urinary tract infection [Recovered/Resolved]
  - Pyrexia [Recovered/Resolved]
  - Injection site inflammation [Not Recovered/Not Resolved]
  - Accidental overdose [Unknown]
